FAERS Safety Report 17574113 (Version 1)
Quarter: 2020Q1

REPORT INFORMATION
  Report Type: Spontaneous
  Country: FR (occurrence: FR)
  Receive Date: 20200323
  Receipt Date: 20200323
  Transmission Date: 20200409
  Serious: Yes (Hospitalization)
  Sender: FDA-Public Use
  Company Number: FR-ALLERGAN-2011816US

PATIENT
  Sex: Male
  Weight: 99 kg

DRUGS (2)
  1. XYDALBA [Suspect]
     Active Substance: DALBAVANCIN HYDROCHLORIDE
     Indication: ACTINOMYCOSIS
     Route: 041
     Dates: start: 20200130, end: 20200130
  2. OPDIVO [Suspect]
     Active Substance: NIVOLUMAB
     Indication: LUNG ADENOCARCINOMA
     Dosage: 240 MG EVERY 15 DAYS
     Route: 041
     Dates: start: 20181128

REACTIONS (2)
  - Rash erythematous [Recovered/Resolved]
  - Rash [Recovered/Resolved]

NARRATIVE: CASE EVENT DATE: 20200206
